FAERS Safety Report 20937498 (Version 1)
Quarter: 2022Q2

REPORT INFORMATION
  Report Type: Spontaneous
  Country: US (occurrence: None)
  Receive Date: 20220608
  Receipt Date: 20220608
  Transmission Date: 20220720
  Serious: Yes (Hospitalization)
  Sender: FDA-Public Use
  Company Number: None

PATIENT
  Age: 63 Year
  Sex: Male

DRUGS (2)
  1. WARFARIN [Suspect]
     Active Substance: WARFARIN
     Indication: Vascular operation
  2. WARFARIN [Suspect]
     Active Substance: WARFARIN
     Indication: Peripheral vascular disorder

REACTIONS (2)
  - Diverticulitis [None]
  - Lower gastrointestinal haemorrhage [None]

NARRATIVE: CASE EVENT DATE: 20220529
